FAERS Safety Report 7815305-1 (Version None)
Quarter: 2011Q4

REPORT INFORMATION
  Report Type: 
  Country: None (occurrence: None)
  Receive Date: 20111014
  Receipt Date: 20111011
  Transmission Date: 20120403
  Serious: Yes (Hospitalization)
  Sender: FDA-Public Use
  Company Number: CA-ABBOTT-11P-028-0863271-00

PATIENT
  Sex: Female
  Weight: 88.53 kg

DRUGS (7)
  1. OXAZEPAM [Concomitant]
     Indication: DEPRESSION
     Route: 048
     Dates: start: 20090101
  2. HUMIRA [Suspect]
     Indication: CROHN'S DISEASE
     Route: 058
     Dates: start: 20090728
  3. PANTOPRAZOLE [Concomitant]
     Indication: GASTRIC DISORDER
     Route: 048
     Dates: start: 20090101
  4. OLANZAPINE [Concomitant]
     Indication: SLEEP DISORDER
     Route: 048
     Dates: start: 20090101
  5. VENLASAXINE [Concomitant]
     Indication: DEPRESSION
     Route: 048
     Dates: start: 20090101
  6. TYLENOL-500 [Concomitant]
     Indication: CROHN'S DISEASE
     Dosage: 100MG AS REQUIRED
     Route: 048
  7. DOCUSATE [Concomitant]
     Indication: CONSTIPATION
     Route: 048
     Dates: start: 20110501

REACTIONS (4)
  - CONSTIPATION [None]
  - DIARRHOEA [None]
  - WEIGHT DECREASED [None]
  - DEPRESSION [None]
